FAERS Safety Report 20637915 (Version 2)
Quarter: 2022Q3

REPORT INFORMATION
  Report Type: Report from Study
  Country: CN (occurrence: None)
  Receive Date: 20220325
  Receipt Date: 20220818
  Transmission Date: 20221027
  Serious: Yes (Hospitalization)
  Sender: FDA-Public Use
  Company Number: 2022A074003

PATIENT
  Age: 64 Year
  Sex: Male

DRUGS (39)
  1. DURVALUMAB [Suspect]
     Active Substance: DURVALUMAB
     Indication: Oesophageal squamous cell carcinoma
     Route: 042
     Dates: start: 20220111, end: 20220111
  2. DURVALUMAB [Suspect]
     Active Substance: DURVALUMAB
     Indication: Oesophageal squamous cell carcinoma
     Route: 042
     Dates: start: 20220208, end: 20220208
  3. DURVALUMAB [Suspect]
     Active Substance: DURVALUMAB
     Indication: Oesophageal squamous cell carcinoma
     Route: 042
     Dates: start: 20220308, end: 20220308
  4. DURVALUMAB [Suspect]
     Active Substance: DURVALUMAB
     Indication: Oesophageal squamous cell carcinoma
     Route: 042
     Dates: start: 20220406, end: 20220406
  5. DURVALUMAB [Suspect]
     Active Substance: DURVALUMAB
     Indication: Oesophageal squamous cell carcinoma
     Route: 042
     Dates: start: 20220506, end: 20220506
  6. DURVALUMAB [Suspect]
     Active Substance: DURVALUMAB
     Indication: Oesophageal squamous cell carcinoma
     Route: 042
     Dates: start: 20220601, end: 20220601
  7. DURVALUMAB [Suspect]
     Active Substance: DURVALUMAB
     Indication: Oesophageal squamous cell carcinoma
     Route: 042
     Dates: start: 20220629, end: 20220629
  8. DURVALUMAB [Suspect]
     Active Substance: DURVALUMAB
     Indication: Oesophageal squamous cell carcinoma
     Route: 042
     Dates: start: 20220727, end: 20220727
  9. CISPLATIN [Suspect]
     Active Substance: CISPLATIN
     Indication: Oesophageal squamous cell carcinoma
     Route: 065
     Dates: start: 20220111, end: 20220111
  10. CISPLATIN [Suspect]
     Active Substance: CISPLATIN
     Indication: Oesophageal squamous cell carcinoma
     Route: 065
     Dates: start: 20220119, end: 20220119
  11. CISPLATIN [Suspect]
     Active Substance: CISPLATIN
     Indication: Oesophageal squamous cell carcinoma
     Route: 065
     Dates: start: 20220127, end: 20220127
  12. CISPLATIN [Suspect]
     Active Substance: CISPLATIN
     Indication: Oesophageal squamous cell carcinoma
     Route: 065
     Dates: start: 20220207, end: 20220207
  13. CAPECITABINE [Suspect]
     Active Substance: CAPECITABINE
     Indication: Oesophageal squamous cell carcinoma
     Route: 065
     Dates: start: 20220112, end: 20220116
  14. CAPECITABINE [Suspect]
     Active Substance: CAPECITABINE
     Indication: Oesophageal squamous cell carcinoma
     Route: 065
     Dates: start: 20220119, end: 20220123
  15. CAPECITABINE [Suspect]
     Active Substance: CAPECITABINE
     Indication: Oesophageal squamous cell carcinoma
     Route: 065
     Dates: start: 20220126, end: 20220130
  16. CAPECITABINE [Suspect]
     Active Substance: CAPECITABINE
     Indication: Oesophageal squamous cell carcinoma
     Route: 065
     Dates: start: 20220202, end: 20220204
  17. CAPECITABINE [Suspect]
     Active Substance: CAPECITABINE
     Indication: Oesophageal squamous cell carcinoma
     Route: 065
     Dates: start: 20220209, end: 20220213
  18. DOLASETRON MESYLATE INJECTION [Concomitant]
     Indication: Antibiotic prophylaxis
     Route: 042
     Dates: start: 20220110, end: 20220120
  19. DOLASETRON MESYLATE INJECTION [Concomitant]
     Indication: Nausea
     Route: 042
     Dates: start: 20220110, end: 20220120
  20. DOLASETRON MESYLATE INJECTION [Concomitant]
     Indication: Antibiotic prophylaxis
     Route: 042
     Dates: start: 20220126, end: 20220129
  21. DOLASETRON MESYLATE INJECTION [Concomitant]
     Indication: Nausea
     Route: 042
     Dates: start: 20220126, end: 20220129
  22. AMINO ACIDS, SOURCE UNSPECIFIED [Concomitant]
     Active Substance: AMINO ACIDS, SOURCE UNSPECIFIED
     Indication: Nutritional supplementation
     Route: 042
     Dates: start: 20220110, end: 20220117
  23. MULTIVITAMIN FOR INJECTION [Concomitant]
     Indication: Vitamin supplementation
     Route: 042
     Dates: start: 20220110, end: 20220120
  24. MULTIVITAMIN FOR INJECTION [Concomitant]
     Indication: Vitamin supplementation
     Route: 042
     Dates: start: 20220126, end: 20220129
  25. MULTIVITAMIN FOR INJECTION [Concomitant]
     Indication: Vitamin supplementation
     Route: 042
     Dates: start: 20220203, end: 20220214
  26. GLYCIDIDAZOLE SODIUM FOR INJECTION [Concomitant]
     Indication: Radiotherapy
     Route: 042
     Dates: start: 20220111, end: 20220111
  27. GLYCIDIDAZOLE SODIUM FOR INJECTION [Concomitant]
     Indication: Radiotherapy
     Route: 042
     Dates: start: 20220119, end: 20220119
  28. GLYCIDIDAZOLE SODIUM FOR INJECTION [Concomitant]
     Indication: Radiotherapy
     Route: 042
     Dates: start: 20220120, end: 20220120
  29. ONDANSETRON HYDROCHLORIDE [Concomitant]
     Active Substance: ONDANSETRON HYDROCHLORIDE
     Indication: Nausea
     Route: 048
     Dates: start: 20220124, end: 20220127
  30. ILAPRAZOLE SODIUM FOR INJECTION [Concomitant]
     Indication: Protein total
     Route: 042
     Dates: start: 20220203, end: 20220214
  31. BETAMETHASONE SODIUM PHOSPHATE FOR INJECTION [Concomitant]
     Indication: Oesophagitis
     Route: 042
     Dates: start: 20220203, end: 20220207
  32. ENTERAL NUTRITIONAL POWDER [Concomitant]
     Indication: Nutritional supplementation
     Route: 048
     Dates: start: 20220114, end: 20220114
  33. FOSAPREPITANT DIMEGLUMINE [Concomitant]
     Active Substance: FOSAPREPITANT DIMEGLUMINE
     Indication: Nausea
     Route: 042
     Dates: start: 20220111, end: 20220111
  34. FOSAPREPITANT DIMEGLUMINE [Concomitant]
     Active Substance: FOSAPREPITANT DIMEGLUMINE
     Indication: Nausea
     Route: 042
     Dates: start: 20220118, end: 20220118
  35. ILAPRAZOLE ENTERIC-COATED TABLETS [Concomitant]
     Indication: Protein total
     Route: 048
     Dates: start: 20220128, end: 20220128
  36. ILAPRAZOLE ENTERIC-COATED TABLETS [Concomitant]
     Indication: Protein total
     Route: 048
     Dates: start: 20220204
  37. KANGFUXINYE [Concomitant]
     Indication: Oesophageal operation
     Route: 048
     Dates: start: 20220128, end: 20220128
  38. HUMAN GRANULOCYTE STIMULATING FACTOR INJECTION [Concomitant]
     Indication: White blood cell count
     Dates: start: 20220210, end: 20220210
  39. HUMAN GRANULOCYTE STIMULATING FACTOR INJECTION [Concomitant]
     Indication: White blood cell count
     Dates: start: 20220215, end: 20220215

REACTIONS (1)
  - Myelosuppression [Recovered/Resolved]

NARRATIVE: CASE EVENT DATE: 20220206
